FAERS Safety Report 6295921-1 (Version None)
Quarter: 2009Q3

REPORT INFORMATION
  Report Type: 
  Country: None (occurrence: None)
  Receive Date: 20090731
  Receipt Date: 20090720
  Transmission Date: 20100115
  Serious: Yes (Hospitalization)
  Sender: FDA-Public Use
  Company Number: ADE2009-0734

PATIENT
  Age: 32 Year
  Sex: Male

DRUGS (10)
  1. DIDANOSINE [Suspect]
     Indication: HIV INFECTION
     Dosage: 250MG - DAILY
  2. TENOFOVIR DISOPROXIL FUMARATE [Suspect]
     Indication: HIV INFECTION
  3. EFAVIRENZ [Concomitant]
  4. LEUCOVORIN CALCIUM [Concomitant]
  5. LEVOFLOXACIN [Concomitant]
  6. DAPSONE [Concomitant]
  7. CLINDAMYCIN [Concomitant]
  8. GABAPENTIN [Concomitant]
  9. CETIRIZINE HCL [Concomitant]
  10. PYRIMETHAMINE [Concomitant]

REACTIONS (6)
  - FANCONI SYNDROME [None]
  - HYPOPHOSPHATAEMIA [None]
  - HYPOURICAEMIA [None]
  - METABOLIC ACIDOSIS [None]
  - NEPHROGENIC DIABETES INSIPIDUS [None]
  - RENAL FAILURE [None]
